FAERS Safety Report 14171808 (Version 6)
Quarter: 2018Q2

REPORT INFORMATION
  Report Type: Spontaneous
  Country: JP (occurrence: JP)
  Receive Date: 20171108
  Receipt Date: 20180404
  Transmission Date: 20180711
  Serious: Yes (Death)
  Sender: FDA-Public Use
  Company Number: JP-BEH-2017085007

PATIENT
  Age: 67 Year
  Sex: Male
  Weight: 56 kg

DRUGS (8)
  1. KCENTRA [Suspect]
     Active Substance: COAGULATION FACTOR IX HUMAN\COAGULATION FACTOR VII HUMAN\COAGULATION FACTOR X HUMAN\PROTEIN C\PROTEIN S HUMAN\PROTHROMBIN
     Indication: THALAMUS HAEMORRHAGE
     Dosage: 1500 IU, TOT
     Route: 042
     Dates: start: 20171028, end: 20171028
  2. NICARDIPINE [Concomitant]
     Active Substance: NICARDIPINE
     Indication: HYPERTENSION
     Dosage: UNK
     Route: 065
     Dates: start: 20171028, end: 20171031
  3. FAMOTIDINE. [Concomitant]
     Active Substance: FAMOTIDINE
     Indication: HAEMORRHAGE PROPHYLAXIS
     Dosage: UNK
     Route: 065
     Dates: start: 20171029, end: 20171102
  4. KCENTRA [Suspect]
     Active Substance: COAGULATION FACTOR IX HUMAN\COAGULATION FACTOR VII HUMAN\COAGULATION FACTOR X HUMAN\PROTEIN C\PROTEIN S HUMAN\PROTHROMBIN
     Dosage: 1000 IU, UNK
     Route: 042
  5. KAYTWO N [Concomitant]
     Active Substance: MENATETRENONE
     Dosage: 20 MG, UNK
     Route: 065
     Dates: start: 20171028, end: 20171028
  6. KCENTRA [Suspect]
     Active Substance: COAGULATION FACTOR IX HUMAN\COAGULATION FACTOR VII HUMAN\COAGULATION FACTOR X HUMAN\PROTEIN C\PROTEIN S HUMAN\PROTHROMBIN
     Dosage: 500 IU, UNK
     Route: 042
  7. WARFARIN POTASSIUM [Concomitant]
     Active Substance: WARFARIN POTASSIUM
     Indication: ATRIAL FIBRILLATION
     Dosage: 2.5 MG, UNK
     Route: 048
     Dates: end: 20171028
  8. VERAPAMIL [Concomitant]
     Active Substance: VERAPAMIL HYDROCHLORIDE
     Dosage: UNK
     Route: 065
     Dates: start: 20171030, end: 20171030

REACTIONS (3)
  - Brain stem syndrome [Fatal]
  - Coma [Fatal]
  - Thalamus haemorrhage [Fatal]

NARRATIVE: CASE EVENT DATE: 20171101
